FAERS Safety Report 17850905 (Version 1)
Quarter: 2020Q2

REPORT INFORMATION
  Report Type: Spontaneous
  Country: US (occurrence: US)
  Receive Date: 20200602
  Receipt Date: 20200602
  Transmission Date: 20200714
  Serious: Yes (Life-Threatening, Other)
  Sender: FDA-Public Use
  Company Number: None

PATIENT
  Age: 50 Year
  Sex: Female
  Weight: 133.2 kg

DRUGS (1)
  1. REMDESIVIR INJECTION [Suspect]
     Active Substance: REMDESIVIR
     Indication: COVID-19
     Dosage: ?          OTHER FREQUENCY:X1. THEN 100MG/DAY;?
     Route: 042
     Dates: start: 20200519, end: 20200521

REACTIONS (4)
  - Renal disorder [None]
  - Blood creatinine increased [None]
  - Dehydration [None]
  - Pulmonary oedema [None]

NARRATIVE: CASE EVENT DATE: 20200521
